FAERS Safety Report 14740379 (Version 5)
Quarter: 2019Q4

REPORT INFORMATION
  Report Type: Report from Study
  Country: US (occurrence: US)
  Receive Date: 20180410
  Receipt Date: 20191111
  Transmission Date: 20200122
  Serious: Yes (Hospitalization)
  Sender: FDA-Public Use
  Company Number: US-JAZZ-2018-US-004137

PATIENT
  Sex: Female
  Weight: 67.13 kg

DRUGS (17)
  1. XYREM [Suspect]
     Active Substance: SODIUM OXYBATE
     Dosage: 0.5 G, FIRST DOSE
     Route: 048
     Dates: start: 2018
  2. GABAPENTIN. [Concomitant]
     Active Substance: GABAPENTIN
  3. PIMOZIDE. [Concomitant]
     Active Substance: PIMOZIDE
  4. XYREM [Suspect]
     Active Substance: SODIUM OXYBATE
     Indication: NARCOLEPSY
     Dosage: 2.25 G, BID
     Route: 048
     Dates: start: 201710, end: 201711
  5. PANTOPRAZOLE SODIUM. [Concomitant]
     Active Substance: PANTOPRAZOLE SODIUM
  6. TUMS EX [Concomitant]
     Active Substance: CALCIUM CARBONATE
  7. FIORICET [Concomitant]
     Active Substance: ACETAMINOPHEN\BUTALBITAL\CAFFEINE
  8. DEPAKOTE [Concomitant]
     Active Substance: DIVALPROEX SODIUM
  9. MAGNESIUM [Concomitant]
     Active Substance: MAGNESIUM
  10. VITAMIN D3 [Concomitant]
     Active Substance: CHOLECALCIFEROL
  11. NASONEX [Concomitant]
     Active Substance: MOMETASONE FUROATE
  12. ONDANSETRON [Concomitant]
     Active Substance: ONDANSETRON
  13. ZANTAC [Concomitant]
     Active Substance: RANITIDINE HYDROCHLORIDE
  14. XYREM [Suspect]
     Active Substance: SODIUM OXYBATE
     Dosage: 1 G, BID
     Route: 048
     Dates: start: 2018, end: 2018
  15. XYREM [Suspect]
     Active Substance: SODIUM OXYBATE
     Dosage: 0.75 G, SECOND DOSE
     Route: 048
     Dates: start: 2018
  16. NEURONTIN [Concomitant]
     Active Substance: GABAPENTIN
  17. TYLENOL EXTRA STRENGTH [Concomitant]
     Active Substance: ACETAMINOPHEN

REACTIONS (4)
  - Basilar migraine [Unknown]
  - Migraine [Unknown]
  - Condition aggravated [Unknown]
  - Pain [Unknown]

NARRATIVE: CASE EVENT DATE: 2018
